FAERS Safety Report 24862255 (Version 1)
Quarter: 2025Q1

REPORT INFORMATION
  Report Type: Spontaneous
  Country: US (occurrence: US)
  Receive Date: 20250120
  Receipt Date: 20250120
  Transmission Date: 20250408
  Serious: Yes (Other)
  Sender: NOVARTIS
  Company Number: US-002147023-NVSC2025US007951

PATIENT

DRUGS (1)
  1. NETSPOT [Suspect]
     Active Substance: DOTATATE GALLIUM GA-68
     Indication: Product used for unknown indication
     Route: 065

REACTIONS (1)
  - Toxic encephalopathy [Unknown]
